FAERS Safety Report 20570992 (Version 3)
Quarter: 2022Q1

REPORT INFORMATION
  Report Type: Report from Study
  Country: US (occurrence: US)
  Receive Date: 20220309
  Receipt Date: 20220321
  Transmission Date: 20220423
  Serious: No
  Sender: FDA-Public Use
  Company Number: US-NOVARTISTESTPH-NVSC2022US051918

PATIENT
  Age: 25 Year
  Sex: Male

DRUGS (1)
  1. KESIMPTA [Suspect]
     Active Substance: OFATUMUMAB
     Indication: Product used for unknown indication
     Dosage: 20 MG, QMO
     Route: 058
     Dates: start: 20210331

REACTIONS (4)
  - COVID-19 [Unknown]
  - Hiccups [Unknown]
  - Strabismus [Unknown]
  - Diplopia [Unknown]

NARRATIVE: CASE EVENT DATE: 20220202
